FAERS Safety Report 8271320-8 (Version None)
Quarter: 2012Q2

REPORT INFORMATION
  Report Type: 
  Country: None (occurrence: None)
  Receive Date: 20120410
  Receipt Date: 20111229
  Transmission Date: 20120825
  Serious: No
  Sender: FDA-Public Use
  Company Number: US-NOVEN-11US003853

PATIENT
  Sex: Female
  Weight: 72.562 kg

DRUGS (6)
  1. SIMVASTATIN [Concomitant]
     Indication: BLOOD CHOLESTEROL ABNORMAL
  2. FENTANYL CITRATE [Suspect]
     Indication: FIBROMYALGIA
     Dosage: 75 UG/HR Q 3DAYS
     Route: 062
  3. VALTREX [Concomitant]
     Indication: PRODUCT USED FOR UNKNOWN INDICATION
  4. NEXIUM [Concomitant]
     Indication: DYSPEPSIA
  5. VICODIN [Concomitant]
     Indication: BREAKTHROUGH PAIN
  6. TRIPLEX                            /00050502/ [Concomitant]
     Indication: BLOOD CHOLESTEROL ABNORMAL

REACTIONS (2)
  - DRUG ADMINISTRATION ERROR [None]
  - PRODUCT QUALITY ISSUE [None]
